FAERS Safety Report 8266609-2 (Version None)
Quarter: 2012Q2

REPORT INFORMATION
  Report Type: 
  Country: None (occurrence: None)
  Receive Date: 20120406
  Receipt Date: 20120326
  Transmission Date: 20120825
  Serious: Yes (Other)
  Sender: FDA-Public Use
  Company Number: US-BAXTER-2012BH003996

PATIENT
  Sex: Male
  Weight: 71.67 kg

DRUGS (7)
  1. GAMMAGARD LIQUID [Suspect]
  2. GAMMAGARD LIQUID [Suspect]
     Indication: AUTOIMMUNE NEUROPATHY
     Dosage: RATE INCREASED AS TOLERATED, MAX
     Route: 042
     Dates: start: 20120104, end: 20120104
  3. BENADRYL [Concomitant]
     Indication: PREMEDICATION
     Route: 048
     Dates: start: 20120104, end: 20120104
  4. AMITRIPTYLINE HCL [Concomitant]
     Route: 048
  5. NORCO [Concomitant]
     Route: 048
  6. TYLENOL (CAPLET) [Concomitant]
     Indication: PREMEDICATION
     Route: 048
     Dates: start: 20120104, end: 20120104
  7. NEURONTIN [Concomitant]
     Route: 048

REACTIONS (2)
  - BLISTER [None]
  - SKIN INFECTION [None]
